FAERS Safety Report 6871152-9 (Version None)
Quarter: 2010Q3

REPORT INFORMATION
  Report Type: 
  Country: None (occurrence: None)
  Receive Date: 20100723
  Receipt Date: 20100713
  Transmission Date: 20110219
  Serious: Yes (Hospitalization)
  Sender: FDA-Public Use
  Company Number: US-CELGENEUS-163-20785-10071241

PATIENT
  Sex: Male

DRUGS (1)
  1. THALOMID [Suspect]
     Route: 048
     Dates: start: 20071201, end: 20100601

REACTIONS (4)
  - CONFUSIONAL STATE [None]
  - PARAESTHESIA [None]
  - PNEUMONIA [None]
  - URINARY TRACT INFECTION [None]
